FAERS Safety Report 24538175 (Version 1)
Quarter: 2024Q4

REPORT INFORMATION
  Report Type: Spontaneous
  Country: CN (occurrence: CN)
  Receive Date: 20241023
  Receipt Date: 20241023
  Transmission Date: 20250115
  Serious: Yes (Other)
  Sender: ACCORD
  Company Number: CN-MLMSERVICE-20241009-PI219212-00140-1

PATIENT
  Age: 65 Year
  Sex: Male

DRUGS (20)
  1. ETOPOSIDE [Suspect]
     Active Substance: ETOPOSIDE
     Indication: Testicular germ cell cancer metastatic
     Dosage: 150 MG ON DAY 1 TO DAY 5 EVERY 3 WEEKS FOR 4 CYCLES
     Dates: start: 2019, end: 201912
  2. CISPLATIN [Suspect]
     Active Substance: CISPLATIN
     Indication: Testicular germ cell cancer metastatic
     Dosage: 30 MG ON DAY 1 TO DAY 5 EVERY 3 WEEKS FOR 4 CYCLES
     Dates: start: 2019, end: 201912
  3. CISPLATIN [Suspect]
     Active Substance: CISPLATIN
     Indication: Testicular germ cell tumour mixed stage III
     Dosage: 30 MG ON DAY 1 TO DAY 5 EVERY 3 WEEKS FOR 4 CYCLES
     Dates: start: 2019, end: 201912
  4. CISPLATIN [Suspect]
     Active Substance: CISPLATIN
     Indication: Testicular embryonal carcinoma stage III
     Dosage: 30 MG ON DAY 1 TO DAY 5 EVERY 3 WEEKS FOR 4 CYCLES
     Dates: start: 2019, end: 201912
  5. CISPLATIN [Suspect]
     Active Substance: CISPLATIN
     Indication: Testicular yolk sac tumour stage III
     Dosage: 30 MG ON DAY 1 TO DAY 5 EVERY 3 WEEKS FOR 4 CYCLES
     Dates: start: 2019, end: 201912
  6. CISPLATIN [Suspect]
     Active Substance: CISPLATIN
     Indication: Metastases to lymph nodes
     Dosage: 30 MG ON DAY 1 TO DAY 5 EVERY 3 WEEKS FOR 4 CYCLES
     Dates: start: 2019, end: 201912
  7. CISPLATIN [Suspect]
     Active Substance: CISPLATIN
     Indication: Metastases to peripheral vascular system
     Dosage: 30 MG ON DAY 1 TO DAY 5 EVERY 3 WEEKS FOR 4 CYCLES
     Dates: start: 2019, end: 201912
  8. CISPLATIN [Suspect]
     Active Substance: CISPLATIN
     Indication: Metastases to peritoneum
     Dosage: 30 MG ON DAY 1 TO DAY 5 EVERY 3 WEEKS FOR 4 CYCLES
     Dates: start: 2019, end: 201912
  9. CISPLATIN [Suspect]
     Active Substance: CISPLATIN
     Indication: Metastases to the mediastinum
     Dosage: 30 MG ON DAY 1 TO DAY 5 EVERY 3 WEEKS FOR 4 CYCLES
     Dates: start: 2019, end: 201912
  10. CISPLATIN [Suspect]
     Active Substance: CISPLATIN
     Indication: Metastases to neck
     Dosage: 30 MG ON DAY 1 TO DAY 5 EVERY 3 WEEKS FOR 4 CYCLES
     Dates: start: 2019, end: 201912
  11. CISPLATIN [Suspect]
     Active Substance: CISPLATIN
     Indication: Metastases to lung
     Dosage: 30 MG ON DAY 1 TO DAY 5 EVERY 3 WEEKS FOR 4 CYCLES
     Dates: start: 2019, end: 201912
  12. ETOPOSIDE [Suspect]
     Active Substance: ETOPOSIDE
     Indication: Testicular embryonal carcinoma stage III
     Dosage: 150 MG ON DAY 1 TO DAY 5 EVERY 3 WEEKS FOR 4 CYCLES
     Dates: start: 2019, end: 201912
  13. ETOPOSIDE [Suspect]
     Active Substance: ETOPOSIDE
     Indication: Testicular yolk sac tumour stage III
     Dosage: 150 MG ON DAY 1 TO DAY 5 EVERY 3 WEEKS FOR 4 CYCLES
     Dates: start: 2019, end: 201912
  14. ETOPOSIDE [Suspect]
     Active Substance: ETOPOSIDE
     Indication: Metastases to lymph nodes
     Dosage: 150 MG ON DAY 1 TO DAY 5 EVERY 3 WEEKS FOR 4 CYCLES
     Dates: start: 2019, end: 201912
  15. ETOPOSIDE [Suspect]
     Active Substance: ETOPOSIDE
     Indication: Metastases to peripheral vascular system
     Dosage: 150 MG ON DAY 1 TO DAY 5 EVERY 3 WEEKS FOR 4 CYCLES
     Dates: start: 2019, end: 201912
  16. ETOPOSIDE [Suspect]
     Active Substance: ETOPOSIDE
     Indication: Metastases to peritoneum
     Dosage: 150 MG ON DAY 1 TO DAY 5 EVERY 3 WEEKS FOR 4 CYCLES
     Dates: start: 2019, end: 201912
  17. ETOPOSIDE [Suspect]
     Active Substance: ETOPOSIDE
     Indication: Metastases to the mediastinum
     Dosage: 150 MG ON DAY 1 TO DAY 5 EVERY 3 WEEKS FOR 4 CYCLES
     Dates: start: 2019, end: 201912
  18. ETOPOSIDE [Suspect]
     Active Substance: ETOPOSIDE
     Indication: Metastases to neck
     Dosage: 150 MG ON DAY 1 TO DAY 5 EVERY 3 WEEKS FOR 4 CYCLES
     Dates: start: 2019, end: 201912
  19. ETOPOSIDE [Suspect]
     Active Substance: ETOPOSIDE
     Indication: Metastases to lung
     Dosage: 150 MG ON DAY 1 TO DAY 5 EVERY 3 WEEKS FOR 4 CYCLES
     Dates: start: 2019, end: 201912
  20. ETOPOSIDE [Suspect]
     Active Substance: ETOPOSIDE
     Indication: Testicular germ cell tumour mixed stage III
     Dosage: 150 MG ON DAY 1 TO DAY 5 EVERY 3 WEEKS FOR 4 CYCLES
     Dates: start: 2019, end: 201912

REACTIONS (3)
  - Myelosuppression [Recovered/Resolved]
  - Pyrexia [Unknown]
  - Renal injury [Unknown]

NARRATIVE: CASE EVENT DATE: 20190101
